FAERS Safety Report 4971030-6 (Version None)
Quarter: 2006Q2

REPORT INFORMATION
  Report Type: 
  Country: None (occurrence: None)
  Receive Date: 20060412
  Receipt Date: 20060202
  Transmission Date: 20061013
  Serious: Yes (Other)
  Sender: FDA-Public Use
  Company Number: GB-JNJFOC-20040604686

PATIENT
  Sex: Female
  Weight: 60 kg

DRUGS (2)
  1. SPORANOX [Suspect]
     Indication: VAGINAL CANDIDIASIS
     Route: 065
     Dates: start: 20040609
  2. LEVOTHYROXINE SODIUM [Concomitant]
     Indication: HYPOTHYROIDISM
     Route: 048

REACTIONS (3)
  - DRUG EXPOSURE DURING PREGNANCY [None]
  - METRORRHAGIA [None]
  - PLACENTA PRAEVIA [None]
